FAERS Safety Report 16922804 (Version 2)
Quarter: 2019Q4

REPORT INFORMATION
  Report Type: Spontaneous
  Country: US (occurrence: US)
  Receive Date: 20191016
  Receipt Date: 20191111
  Transmission Date: 20200122
  Serious: No
  Sender: FDA-Public Use
  Company Number: US-ASTRAZENECA-2019SF39151

PATIENT
  Sex: Female

DRUGS (1)
  1. BYDUREON BCISE [Suspect]
     Active Substance: EXENATIDE
     Dosage: ONCE A WEEK
     Route: 058

REACTIONS (4)
  - Needle issue [Unknown]
  - Device defective [Unknown]
  - Injection site erythema [Unknown]
  - Device malfunction [Unknown]

NARRATIVE: CASE EVENT DATE: 20190921
